FAERS Safety Report 8785224 (Version 3)
Quarter: 2012Q4

REPORT INFORMATION
  Report Type: 
  Country: BR (occurrence: BR)
  Receive Date: 20120914
  Receipt Date: 20121112
  Transmission Date: 20130627
  Serious: Yes (Other)
  Sender: FDA-Public Use
  Company Number: BR-JNJFOC-20120903573

PATIENT
  Age: 54 Year
  Sex: Male

DRUGS (2)
  1. REMICADE [Suspect]
     Indication: ANKYLOSING SPONDYLITIS
     Route: 042
     Dates: start: 201205
  2. REMICADE [Suspect]
     Indication: ANKYLOSING SPONDYLITIS
     Dosage: started approximately in 2008
     Route: 042
     Dates: end: 20120131

REACTIONS (2)
  - Hip arthroplasty [Unknown]
  - Chondropathy [Not Recovered/Not Resolved]
